FAERS Safety Report 9038190 (Version 1)
Quarter: 2013Q1

REPORT INFORMATION
  Report Type: Spontaneous
  Country: US (occurrence: US)
  Receive Date: 20130129
  Receipt Date: 20130129
  Transmission Date: 20140127
  Serious: Yes (Other)
  Sender: FDA-Public Use
  Company Number: US-GLAXOSMITHKLINE-A0978638A

PATIENT
  Sex: Female

DRUGS (23)
  1. WELLBUTRIN [Suspect]
     Indication: PRODUCT USED FOR UNKNOWN INDICATION
     Route: 065
  2. PROTONIX [Concomitant]
  3. SPIRIVA [Concomitant]
  4. SYMBICORT [Concomitant]
  5. VENTOLIN HFA [Concomitant]
  6. ADDERALL [Concomitant]
  7. CELEXA [Concomitant]
  8. KLONOPIN [Concomitant]
  9. SEROQUEL [Concomitant]
  10. PHENYTOIN [Concomitant]
  11. VITAMIN B12 [Concomitant]
  12. SENOKOT [Concomitant]
  13. LEVOTHYROXINE [Concomitant]
  14. VITAMIN D3 [Concomitant]
  15. CLARINEX [Concomitant]
  16. ESTROGEN + METHYLTESTOSTERONE [Concomitant]
  17. BIOTIN [Concomitant]
  18. ACETAMINOPHEN [Concomitant]
  19. KOMBIGLYZE XR [Concomitant]
  20. PNEUMONIA VACCINE (NON-GSK) [Concomitant]
  21. TETANUS VACCINE (NON-GSK) [Concomitant]
  22. INFLUENZA VACCINE UNSPECIFIED 2011-12 SEASON [Concomitant]
  23. GLIPIZIDE [Concomitant]

REACTIONS (1)
  - Convulsion [Unknown]
